FAERS Safety Report 6128364-1 (Version None)
Quarter: 2009Q1

REPORT INFORMATION
  Report Type: 
  Country: None (occurrence: None)
  Receive Date: 20090323
  Receipt Date: 20090316
  Transmission Date: 20090719
  Serious: Yes (Other)
  Sender: FDA-Public Use
  Company Number: D0060899A

PATIENT
  Age: 85 Year
  Sex: Male
  Weight: 53 kg

DRUGS (3)
  1. LAMICTAL [Suspect]
     Indication: PROPHYLAXIS
     Dosage: 100MG PER DAY
     Route: 048
     Dates: start: 20080923, end: 20081113
  2. LITHIUM CARBONATE [Concomitant]
     Dosage: 400MG PER DAY
     Route: 048
     Dates: start: 20080923
  3. REMERGIL [Concomitant]
     Indication: DEPRESSION
     Dosage: 15MG PER DAY
     Route: 048
     Dates: start: 20080926

REACTIONS (2)
  - GENERAL PHYSICAL HEALTH DETERIORATION [None]
  - TRANSAMINASES INCREASED [None]
